FAERS Safety Report 23342393 (Version 1)
Quarter: 2023Q4

REPORT INFORMATION
  Report Type: Report from Study
  Country: SE (occurrence: SE)
  Receive Date: 20231227
  Receipt Date: 20231227
  Transmission Date: 20240110
  Serious: Yes (Death, Life-Threatening, Hospitalization, Other)
  Sender: FDA-Public Use
  Company Number: SE-ACTELION-A-CH2018-166977

PATIENT
  Age: 70 Year
  Sex: Male
  Weight: 55 kg

DRUGS (24)
  1. UPTRAVI [Suspect]
     Active Substance: SELEXIPAG
     Indication: Pulmonary arterial hypertension
     Dosage: 400 UG, QD
     Route: 048
     Dates: start: 20171219, end: 20171227
  2. UPTRAVI [Suspect]
     Active Substance: SELEXIPAG
     Indication: Anticoagulant therapy
     Dosage: 800 UG, QD
     Route: 048
     Dates: start: 20171227, end: 20180102
  3. UPTRAVI [Suspect]
     Active Substance: SELEXIPAG
     Dosage: 1200 UG, QD
     Route: 048
     Dates: start: 20180102, end: 20180109
  4. UPTRAVI [Suspect]
     Active Substance: SELEXIPAG
     Dosage: 1600 UG, QD
     Route: 048
     Dates: start: 20180109, end: 20180116
  5. UPTRAVI [Suspect]
     Active Substance: SELEXIPAG
     Dosage: 2000 UG, QD
     Route: 048
     Dates: start: 20180116, end: 20180123
  6. UPTRAVI [Suspect]
     Active Substance: SELEXIPAG
     Dosage: 2400 UG, QD
     Route: 048
     Dates: start: 20180123, end: 20180130
  7. UPTRAVI [Suspect]
     Active Substance: SELEXIPAG
     Dosage: 2800 UG, QD
     Route: 048
     Dates: start: 20180130, end: 20180206
  8. UPTRAVI [Suspect]
     Active Substance: SELEXIPAG
     Dosage: 3200 UG, QD
     Route: 048
     Dates: start: 20180206, end: 20191206
  9. UPTRAVI [Suspect]
     Active Substance: SELEXIPAG
     Route: 048
     Dates: start: 2016
  10. OPSUMIT [Suspect]
     Active Substance: MACITENTAN
     Indication: Pulmonary arterial hypertension
     Dosage: 10 MG, QD
     Route: 048
     Dates: start: 20171123, end: 20191206
  11. TADALAFIL [Suspect]
     Active Substance: TADALAFIL
     Indication: Pulmonary arterial hypertension
     Dosage: 20 MG BID
     Route: 048
     Dates: start: 20171130, end: 20191206
  12. OMEPRAZOLE [Concomitant]
     Active Substance: OMEPRAZOLE
     Indication: Gastritis
     Dosage: UNK
     Route: 048
  13. USTEKINUMAB [Concomitant]
     Active Substance: USTEKINUMAB
     Indication: Psoriasis
     Dosage: UNK
     Route: 058
     Dates: start: 2016
  14. FINASTERIDE [Concomitant]
     Active Substance: FINASTERIDE
     Indication: Micturition disorder
     Dosage: 5 MG, QD
     Route: 048
     Dates: start: 2015
  15. FINASTERIDE [Concomitant]
     Active Substance: FINASTERIDE
     Indication: Prostatic disorder
  16. METOPROLOL [Concomitant]
     Active Substance: METOPROLOL
     Indication: Atrial fibrillation
     Dosage: 25 MG, QD
     Route: 048
     Dates: start: 2007, end: 20171219
  17. SPIRONOLACTONE [Concomitant]
     Active Substance: SPIRONOLACTONE
     Indication: Right ventricular failure
     Dosage: 50 MG, QD
     Route: 048
     Dates: start: 2016
  18. SPIRONOLACTONE [Concomitant]
     Active Substance: SPIRONOLACTONE
     Indication: Diuretic therapy
  19. BUMETANIDE [Concomitant]
     Active Substance: BUMETANIDE
     Indication: Right ventricular failure
     Dosage: 1 MG, QD
     Route: 048
     Dates: start: 2016
  20. BUMETANIDE [Concomitant]
     Active Substance: BUMETANIDE
     Indication: Diuretic therapy
  21. APIXABAN [Concomitant]
     Active Substance: APIXABAN
     Indication: Anticoagulant therapy
     Dosage: 5 MG, BID
     Route: 048
     Dates: start: 2016, end: 201805
  22. APIXABAN [Concomitant]
     Active Substance: APIXABAN
     Dosage: UNK
     Route: 048
  23. SIMVASTATIN [Concomitant]
     Active Substance: SIMVASTATIN
     Indication: Infarction
     Dosage: 40 MG, QD
     Route: 048
     Dates: start: 2007
  24. SIMVASTATIN [Concomitant]
     Active Substance: SIMVASTATIN
     Indication: Hyperlipidaemia

REACTIONS (30)
  - Pulmonary arterial hypertension [Fatal]
  - Disease progression [Fatal]
  - Oesophageal varices haemorrhage [Recovered/Resolved with Sequelae]
  - Faeces discoloured [Recovered/Resolved with Sequelae]
  - Transfusion [Recovered/Resolved with Sequelae]
  - Red blood cell transfusion [Recovered/Resolved with Sequelae]
  - Sclerotherapy [Recovered/Resolved with Sequelae]
  - Anaemia [Not Recovered/Not Resolved]
  - Haemoglobin decreased [Not Recovered/Not Resolved]
  - Ascites [Unknown]
  - Abdominal cavity drainage [Unknown]
  - Cholecystitis [Not Recovered/Not Resolved]
  - Abdominal pain [Not Recovered/Not Resolved]
  - Cholelithiasis [Not Recovered/Not Resolved]
  - Non-cardiac chest pain [Unknown]
  - Catheterisation cardiac [Unknown]
  - General physical health deterioration [Recovered/Resolved with Sequelae]
  - Diarrhoea [Recovered/Resolved with Sequelae]
  - Upper gastrointestinal haemorrhage [Recovered/Resolved with Sequelae]
  - Renal impairment [Unknown]
  - Oesophageal variceal ligation [Unknown]
  - Hepatic cirrhosis [Not Recovered/Not Resolved]
  - Abdominal distension [Not Recovered/Not Resolved]
  - Haemorrhage [Recovered/Resolved with Sequelae]
  - Portal hypertension [Not Recovered/Not Resolved]
  - Cough [Not Recovered/Not Resolved]
  - Dyspnoea [Recovered/Resolved]
  - Colitis [Unknown]
  - Weight decreased [Unknown]
  - Lethargy [Unknown]

NARRATIVE: CASE EVENT DATE: 20171227
